FAERS Safety Report 7950746-3 (Version None)
Quarter: 2011Q4

REPORT INFORMATION
  Report Type: 
  Country: None (occurrence: None)
  Receive Date: 20111123
  Receipt Date: 20111109
  Transmission Date: 20120403
  Serious: Yes (Hospitalization)
  Sender: FDA-Public Use
  Company Number: UTC-011332

PATIENT
  Age: 63 Year
  Sex: Male
  Weight: 131.7 kg

DRUGS (4)
  1. REVATIO [Concomitant]
  2. DIURETICS (DIURETICS) [Concomitant]
  3. COUMADIN [Concomitant]
  4. REMODULIN [Suspect]
     Indication: PULMONARY ARTERIAL HYPERTENSION
     Dosage: 90.72 UG/KG (0.063 UG/KG, 1 IN 1 MIN), INTRAVENOUS
     Route: 042
     Dates: start: 20081216

REACTIONS (8)
  - OXYGEN SATURATION ABNORMAL [None]
  - OEDEMA [None]
  - NAUSEA [None]
  - PAIN IN EXTREMITY [None]
  - CONFUSIONAL STATE [None]
  - HEART RATE ABNORMAL [None]
  - DYSPNOEA [None]
  - HYPOXIA [None]
